FAERS Safety Report 17079846 (Version 1)
Quarter: 2019Q4

REPORT INFORMATION
  Report Type: Spontaneous
  Country: US (occurrence: US)
  Receive Date: 20191127
  Receipt Date: 20191127
  Transmission Date: 20200122
  Serious: No
  Sender: FDA-Public Use
  Company Number: US-AUROBINDO-AUR-APL-2019-028921

PATIENT

DRUGS (3)
  1. GABAPENTIN 800MG [Suspect]
     Active Substance: GABAPENTIN
     Indication: PAIN
  2. GABAPENTIN 800MG [Suspect]
     Active Substance: GABAPENTIN
     Indication: FIBROMYALGIA
     Dosage: 800 MILLIGRAM, 3 TIMES A DAY
     Route: 048
  3. SYNTHROID [Concomitant]
     Active Substance: LEVOTHYROXINE SODIUM
     Indication: PRODUCT USED FOR UNKNOWN INDICATION
     Dosage: UNK
     Route: 065

REACTIONS (4)
  - Malaise [Unknown]
  - Condition aggravated [Unknown]
  - Drug ineffective [Unknown]
  - Product substitution issue [Unknown]
